FAERS Safety Report 7542109-X (Version None)
Quarter: 2011Q2

REPORT INFORMATION
  Report Type: 
  Country: None (occurrence: None)
  Receive Date: 20110613
  Receipt Date: 20110602
  Transmission Date: 20111010
  Serious: Yes (Other)
  Sender: FDA-Public Use
  Company Number: JP-ASTRAZENECA-2011SE34163

PATIENT
  Age: 22745 Day
  Sex: Male

DRUGS (58)
  1. MEROPENEM [Suspect]
     Route: 042
     Dates: start: 20110312, end: 20110423
  2. AMBISOME [Suspect]
     Indication: CANDIDIASIS
     Dates: start: 20110210, end: 20110218
  3. TARGOCID [Suspect]
     Dates: start: 20110201, end: 20110218
  4. TARGOCID [Suspect]
     Dates: start: 20110310, end: 20110310
  5. TARGOCID [Suspect]
     Dates: start: 20110407, end: 20110407
  6. TARGOCID [Suspect]
     Dates: start: 20110421, end: 20110423
  7. TARGOCID [Suspect]
     Dates: start: 20110424, end: 20110424
  8. TARGOCID [Suspect]
     Dates: start: 20110502, end: 20110502
  9. TARGOCID [Suspect]
     Dates: start: 20110506, end: 20110506
  10. ZYVOX [Suspect]
     Dates: start: 20110511, end: 20110517
  11. MEROPENEM [Suspect]
     Route: 042
     Dates: start: 20110107, end: 20110117
  12. TARGOCID [Suspect]
     Dates: start: 20110429, end: 20110501
  13. TARGOCID [Suspect]
     Dates: start: 20110503, end: 20110505
  14. MEROPENEM [Suspect]
     Route: 042
     Dates: start: 20110310, end: 20110310
  15. AMBISOME [Suspect]
     Dates: start: 20110322, end: 20110331
  16. AMBISOME [Suspect]
     Dates: start: 20110420, end: 20110422
  17. TARGOCID [Suspect]
     Dates: start: 20110117, end: 20110118
  18. TARGOCID [Suspect]
     Dates: start: 20110404, end: 20110406
  19. TARGOCID [Suspect]
     Dates: start: 20110417, end: 20110419
  20. MEROPENEM [Suspect]
     Route: 042
     Dates: start: 20110424, end: 20110428
  21. TARGOCID [Suspect]
     Dates: start: 20110108, end: 20110108
  22. TARGOCID [Suspect]
     Dates: start: 20110311, end: 20110311
  23. TARGOCID [Suspect]
     Dates: start: 20110324, end: 20110324
  24. TARGOCID [Suspect]
     Dates: start: 20110507, end: 20110509
  25. AMBISOME [Suspect]
     Dates: start: 20110219, end: 20110221
  26. AMBISOME [Suspect]
     Dates: start: 20110423, end: 20110428
  27. TARGOCID [Suspect]
     Dates: start: 20110109, end: 20110116
  28. TARGOCID [Suspect]
     Dates: start: 20110222, end: 20110308
  29. TARGOCID [Suspect]
     Dates: start: 20110328, end: 20110328
  30. TARGOCID [Suspect]
     Dates: start: 20110425, end: 20110427
  31. STEROID [Concomitant]
     Indication: DISSEMINATED INTRAVASCULAR COAGULATION
  32. MEROPENEM [Suspect]
     Route: 042
     Dates: start: 20110118, end: 20110309
  33. MEROPENEM [Suspect]
     Route: 042
     Dates: start: 20110311, end: 20110311
  34. AMBISOME [Suspect]
     Dates: start: 20110401, end: 20110404
  35. AMBISOME [Suspect]
     Dates: start: 20110405, end: 20110408
  36. AMBISOME [Suspect]
     Dates: start: 20110409, end: 20110414
  37. TARGOCID [Suspect]
     Dates: start: 20110107, end: 20110107
  38. TARGOCID [Suspect]
     Dates: start: 20110219, end: 20110219
  39. TARGOCID [Suspect]
     Dates: start: 20110220, end: 20110221
  40. TARGOCID [Suspect]
     Dates: start: 20110401, end: 20110402
  41. TARGOCID [Suspect]
     Dates: start: 20110403, end: 20110403
  42. TARGOCID [Suspect]
     Dates: start: 20110408, end: 20110415
  43. TARGOCID [Suspect]
     Dates: start: 20110428, end: 20110428
  44. TARGOCID [Suspect]
     Dates: start: 20110510, end: 20110510
  45. AMBISOME [Suspect]
     Dates: start: 20110511
  46. TARGOCID [Suspect]
     Dates: start: 20110309, end: 20110309
  47. TARGOCID [Suspect]
     Dates: start: 20110511, end: 20110511
  48. ZYVOX [Suspect]
     Dates: start: 20110118, end: 20110118
  49. ZYVOX [Suspect]
     Dates: start: 20110312, end: 20110323
  50. STEROID [Concomitant]
     Indication: ACUTE RESPIRATORY DISTRESS SYNDROME
  51. ANTIBIOTICS [Concomitant]
     Indication: BACTERIAL INFECTION
  52. TARGOCID [Suspect]
     Dates: start: 20110131, end: 20110131
  53. TARGOCID [Suspect]
     Dates: start: 20110329, end: 20110330
  54. TARGOCID [Suspect]
     Dates: start: 20110331, end: 20110331
  55. TARGOCID [Suspect]
     Dates: start: 20110416, end: 20110416
  56. TARGOCID [Suspect]
     Dates: start: 20110420, end: 20110420
  57. ZYVOX [Suspect]
     Dates: start: 20110119, end: 20110131
  58. ZYVOX [Suspect]
     Dates: start: 20110518, end: 20110518

REACTIONS (2)
  - GAMMA-GLUTAMYLTRANSFERASE INCREASED [None]
  - BLOOD ALKALINE PHOSPHATASE INCREASED [None]
